FAERS Safety Report 4433823-3 (Version None)
Quarter: 2004Q3

REPORT INFORMATION
  Report Type: 
  Country: None (occurrence: None)
  Receive Date: 20040826
  Receipt Date: 20040817
  Transmission Date: 20050211
  Serious: Yes (Hospitalization)
  Sender: FDA-Public Use
  Company Number: FR-ROCHE-377750

PATIENT
  Age: 80 Year
  Sex: Female

DRUGS (8)
  1. NICARDIPINE HCL [Suspect]
     Indication: DRUG USE FOR UNKNOWN INDICATION
     Dosage: DURATION OF THERAPY REPORTED AS 3 YEARS AND 1 DAY.
     Route: 048
     Dates: start: 20010629, end: 20040629
  2. PERFALGAN [Suspect]
     Indication: DRUG USE FOR UNKNOWN INDICATION
     Route: 042
     Dates: start: 20040629, end: 20040703
  3. PROPRANOLOL [Concomitant]
  4. PRAVASTATIN SODIUM [Concomitant]
  5. DIOSMIN [Concomitant]
  6. LORAZEPAM [Concomitant]
  7. TIMOLOL MALEATE [Concomitant]
  8. CELLUVISC [Concomitant]
     Dosage: DRUG GENERIC NAME REPORTED AS SODIUM LACTATE/CARMELLOSE.

REACTIONS (3)
  - ACUTE GENERALISED EXANTHEMATOUS PUSTULOSIS [None]
  - DERMATITIS BULLOUS [None]
  - DISLOCATION OF JOINT PROSTHESIS [None]
